FAERS Safety Report 4604565-6 (Version None)
Quarter: 2005Q1

REPORT INFORMATION
  Report Type: 
  Country: None (occurrence: None)
  Receive Date: 20050310
  Receipt Date: 20041025
  Transmission Date: 20050727
  Serious: Yes (Hospitalization)
  Sender: FDA-Public Use
  Company Number: DE-MERCK-0410DEU00706

PATIENT
  Age: 53 Year
  Sex: Male

DRUGS (11)
  1. VIOXX [Suspect]
     Indication: PAIN
     Route: 048
     Dates: start: 20030101, end: 20030601
  2. VIOXX [Suspect]
     Route: 048
     Dates: start: 20030601
  3. VIOXX [Suspect]
     Indication: ARTHRALGIA
     Route: 048
     Dates: start: 20030101, end: 20030601
  4. VIOXX [Suspect]
     Route: 048
     Dates: start: 20030601
  5. INSULIN, BIPHASIC ISOPHANE [INJECTION] [Concomitant]
     Route: 065
  6. ZOCOR [Concomitant]
     Route: 065
  7. GLIMEPIRIDE [Concomitant]
     Route: 065
  8. LEVOTHYROXINE SODIUM [Concomitant]
     Route: 065
  9. METOPROLOL [Concomitant]
     Route: 065
  10. NITROGLYCERIN [Concomitant]
     Route: 065
  11. ASPIRIN [Concomitant]
     Route: 065

REACTIONS (4)
  - CARDIAC FAILURE [None]
  - JOINT EFFUSION [None]
  - MYOCARDIAL INFARCTION [None]
  - OVERDOSE [None]
